FAERS Safety Report 5454450-5 (Version None)
Quarter: 2007Q3

REPORT INFORMATION
  Report Type: 
  Country: None (occurrence: None)
  Receive Date: 20070917
  Receipt Date: 20060922
  Transmission Date: 20080115
  Serious: No
  Sender: FDA-Public Use
  Company Number: US-ASTRAZENECA-2006UW18574

PATIENT
  Age: 60 Year
  Sex: Female
  Weight: 42.2 kg

DRUGS (3)
  1. SEROQUEL [Suspect]
     Indication: DEPRESSION
     Route: 048
     Dates: start: 20060913
  2. POTASSIUM CHLORIDE [Concomitant]
  3. COUMADIN [Concomitant]

REACTIONS (1)
  - BLOOD BLISTER [None]
